FAERS Safety Report 8277447-9 (Version None)
Quarter: 2012Q2

REPORT INFORMATION
  Report Type: 
  Country: None (occurrence: None)
  Receive Date: 20120412
  Receipt Date: 20120404
  Transmission Date: 20120825
  Serious: No
  Sender: FDA-Public Use
  Company Number: US-BAYER-2012-033533

PATIENT

DRUGS (1)
  1. ALEVE (CAPLET) [Suspect]
     Indication: SINUS HEADACHE
     Dosage: UNK
     Route: 048

REACTIONS (2)
  - SINUS HEADACHE [None]
  - ABNORMAL SENSATION IN EYE [None]
